FAERS Safety Report 15860623 (Version 1)
Quarter: 2019Q1

REPORT INFORMATION
  Report Type: Spontaneous
  Country: US (occurrence: US)
  Receive Date: 20190123
  Receipt Date: 20190123
  Transmission Date: 20190417
  Serious: No
  Sender: FDA-Public Use
  Company Number: US-B.I. PHARMACEUTICALS,INC./RIDGEFIELD-2019-BI-002501

PATIENT

DRUGS (2)
  1. LEVODOPA/CARBIDOPA [Concomitant]
     Active Substance: CARBIDOPA\LEVODOPA
     Indication: PRODUCT USED FOR UNKNOWN INDICATION
     Dosage: 25/100 MG?2 TABLETS 5 TIMES A DAY
     Route: 048
  2. MIRAPEX [Suspect]
     Active Substance: PRAMIPEXOLE DIHYDROCHLORIDE
     Indication: PARKINSON^S DISEASE
     Dosage: NOT REPORTED
     Route: 048
     Dates: start: 201110, end: 201705

REACTIONS (5)
  - Impulse-control disorder [Recovered/Resolved]
  - Sleep disorder [Recovered/Resolved]
  - Somnambulism [Recovered/Resolved]
  - Hallucination [Recovered/Resolved]
  - Gambling disorder [Recovered/Resolved]
